APPROVED DRUG PRODUCT: DIBENIL
Active Ingredient: DIPHENHYDRAMINE HYDROCHLORIDE
Strength: 12.5MG/5ML
Dosage Form/Route: ELIXIR;ORAL
Application: A088304 | Product #001
Applicant: HR CENCI LABORATORIES INC
Approved: Dec 16, 1983 | RLD: No | RS: No | Type: DISCN